FAERS Safety Report 4796298-0 (Version None)
Quarter: 2005Q4

REPORT INFORMATION
  Report Type: 
  Country: None (occurrence: None)
  Receive Date: 20051007
  Receipt Date: 20050929
  Transmission Date: 20060501
  Serious: Yes (Other)
  Sender: FDA-Public Use
  Company Number: CIP05002286

PATIENT
  Sex: Female

DRUGS (1)
  1. ACTONEL [Suspect]
     Dosage: ORAL
     Route: 048

REACTIONS (3)
  - ABDOMINAL PAIN UPPER [None]
  - SINGLE FUNCTIONAL KIDNEY [None]
  - TUMOUR EXCISION [None]
